FAERS Safety Report 20167000 (Version 8)
Quarter: 2022Q1

REPORT INFORMATION
  Report Type: Report from Study
  Country: GB (occurrence: GB)
  Receive Date: 20211209
  Receipt Date: 20220330
  Transmission Date: 20220423
  Serious: Yes (Hospitalization, Other)
  Sender: FDA-Public Use
  Company Number: None

PATIENT
  Age: 72 Year
  Sex: Female

DRUGS (94)
  1. DOCETAXEL [Suspect]
     Active Substance: DOCETAXEL
     Indication: HER2 positive breast cancer
     Dosage: 92 MILLIGRAM, EVERY 3 WEEKS (92 MG, TIW)
     Route: 065
     Dates: start: 20150514, end: 20150715
  2. DOCETAXEL [Suspect]
     Active Substance: DOCETAXEL
     Dosage: 86 MILLIGRAM, EVERY 3 WEEKS (86 MG, Q3W)
     Route: 065
     Dates: start: 20150828, end: 20150918
  3. DOCETAXEL [Suspect]
     Active Substance: DOCETAXEL
     Indication: HER2 positive breast cancer
     Dosage: 368 MILLIGRAM
     Route: 065
  4. TRASTUZUMAB [Suspect]
     Active Substance: TRASTUZUMAB
     Dosage: 300 MG, Q3W
     Route: 042
     Dates: start: 20150603, end: 20150804
  5. TRASTUZUMAB [Suspect]
     Active Substance: TRASTUZUMAB
     Dosage: 275 MG, Q3W
     Route: 042
     Dates: start: 20150818, end: 20151211
  6. TRASTUZUMAB [Suspect]
     Active Substance: TRASTUZUMAB
     Dosage: 300 MG, Q3W
     Route: 042
     Dates: start: 20160108, end: 20160405
  7. TRASTUZUMAB [Suspect]
     Active Substance: TRASTUZUMAB
     Dosage: 400 MG (LOADING DOSE), Q3W
     Route: 042
     Dates: start: 20150513, end: 20150513
  8. TRASTUZUMAB [Suspect]
     Active Substance: TRASTUZUMAB
     Dosage: 300 MG
     Route: 042
  9. TRASTUZUMAB [Suspect]
     Active Substance: TRASTUZUMAB
     Dosage: 300 MG, Q3W
     Route: 042
     Dates: start: 20150603, end: 20150828
  10. EXEMESTANE [Suspect]
     Active Substance: EXEMESTANE
     Indication: HER2 positive breast cancer
     Dosage: 25 MILLIGRAM, QD
     Route: 048
     Dates: start: 20151013, end: 201604
  11. PERTUZUMAB [Suspect]
     Active Substance: PERTUZUMAB
     Indication: Breast cancer metastatic
     Dosage: 420 MILLIGRAM, TIW
     Route: 042
     Dates: start: 20150603, end: 20150807
  12. PERTUZUMAB [Suspect]
     Active Substance: PERTUZUMAB
     Indication: HER2 positive breast cancer
  13. ADO-TRASTUZUMAB EMTANSINE [Suspect]
     Active Substance: ADO-TRASTUZUMAB EMTANSINE
     Indication: Breast cancer metastatic
     Dosage: 148 MG, Q3W
     Route: 042
     Dates: start: 20160810, end: 20170419
  14. ADO-TRASTUZUMAB EMTANSINE [Suspect]
     Active Substance: ADO-TRASTUZUMAB EMTANSINE
     Indication: Breast cancer metastatic
     Dosage: 184 MG, Q3W
     Route: 042
     Dates: start: 20160426, end: 20160720
  15. ADO-TRASTUZUMAB EMTANSINE [Suspect]
     Active Substance: ADO-TRASTUZUMAB EMTANSINE
     Dosage: 160 MG, Q3W
     Route: 042
     Dates: start: 20170510, end: 20180808
  16. ADO-TRASTUZUMAB EMTANSINE [Suspect]
     Active Substance: ADO-TRASTUZUMAB EMTANSINE
     Dosage: 148 MILLIGRAM, Q3W/ START DATE: 10-AUG-2016
     Route: 042
     Dates: end: 20170419
  17. ADO-TRASTUZUMAB EMTANSINE [Suspect]
     Active Substance: ADO-TRASTUZUMAB EMTANSINE
     Dosage: 184 MILLIGRAM, Q3W/ START DATE: 24-APR-2016
     Route: 042
     Dates: end: 20160720
  18. ADO-TRASTUZUMAB EMTANSINE [Suspect]
     Active Substance: ADO-TRASTUZUMAB EMTANSINE
     Dosage: 184 MILLIGRAM, Q3W/ START DATE: 26-APR-2016
     Route: 042
     Dates: end: 20160720
  19. ADO-TRASTUZUMAB EMTANSINE [Suspect]
     Active Substance: ADO-TRASTUZUMAB EMTANSINE
     Dosage: 160 MILLIGRAM, Q3W/ START DATE: 10-MAY-2017
     Route: 042
     Dates: end: 20180808
  20. NERATINIB [Suspect]
     Active Substance: NERATINIB
     Indication: HER2 positive breast cancer
     Dosage: 240 MILLIGRAM, QD
     Route: 048
     Dates: start: 20180825, end: 201811
  21. AMOXYCILLIN [AMOXICILLIN] [Concomitant]
     Indication: Infection
     Dosage: 500 MG, QD
     Route: 048
     Dates: start: 20150804, end: 20150810
  22. DEXAMETHASONE [Concomitant]
     Active Substance: DEXAMETHASONE
     Indication: Product used for unknown indication
     Dosage: 5 ML, QD
     Route: 047
     Dates: start: 20150714, end: 20150923
  23. DEXAMETHASONE [Concomitant]
     Active Substance: DEXAMETHASONE
     Dosage: 2 MG
     Route: 048
     Dates: start: 20150803, end: 20150805
  24. DEXAMETHASONE [Concomitant]
     Active Substance: DEXAMETHASONE
     Dosage: 2 MG
     Route: 048
     Dates: start: 20181002, end: 20181212
  25. DEXAMETHASONE [Concomitant]
     Active Substance: DEXAMETHASONE
     Dosage: 8 MG, QD
     Route: 048
     Dates: start: 20150803, end: 20150805
  26. CETIRIZINE [Concomitant]
     Active Substance: CETIRIZINE HYDROCHLORIDE
     Indication: Product used for unknown indication
     Dosage: 10 MG, QD
     Route: 048
     Dates: start: 20150805, end: 20150807
  27. CETIRIZINE [Concomitant]
     Active Substance: CETIRIZINE HYDROCHLORIDE
     Dosage: 10 MG, QD
     Route: 048
     Dates: start: 20180825, end: 20180827
  28. CETIRIZINE [Concomitant]
     Active Substance: CETIRIZINE HYDROCHLORIDE
     Dosage: 10 MG
     Route: 048
     Dates: end: 20190406
  29. CETIRIZINE [Concomitant]
     Active Substance: CETIRIZINE HYDROCHLORIDE
     Dosage: 10 MG, QD
     Route: 048
     Dates: start: 20150805, end: 20190406
  30. CETIRIZINE [Concomitant]
     Active Substance: CETIRIZINE HYDROCHLORIDE
     Dosage: 1 MG, QD
     Route: 048
     Dates: start: 20180825, end: 20180827
  31. RANITIDINE [Concomitant]
     Active Substance: RANITIDINE
     Indication: Product used for unknown indication
     Dosage: 150 MILLIGRAM, QD
     Route: 048
     Dates: start: 20150825, end: 20150827
  32. RANITIDINE [Concomitant]
     Active Substance: RANITIDINE
     Dosage: 150 MILLIGRAM, QD
     Route: 048
     Dates: start: 20150805, end: 20150807
  33. RANITIDINE [Concomitant]
     Active Substance: RANITIDINE
     Dosage: 150 MG, QD
     Route: 048
     Dates: start: 20150825
  34. RANITIDINE [Concomitant]
     Active Substance: RANITIDINE
     Dosage: 300 MILLIGRAM, QD
     Route: 048
     Dates: start: 20150805, end: 20150807
  35. RANITIDINE [Concomitant]
     Active Substance: RANITIDINE
     Dosage: 300 MILLIGRAM, QD
     Route: 065
     Dates: start: 20150825
  36. DOMPERIDONE [Concomitant]
     Active Substance: DOMPERIDONE
     Indication: Prophylaxis
     Dosage: 10 MG, QD
     Route: 048
     Dates: start: 20150803, end: 20150805
  37. DOMPERIDONE [Concomitant]
     Active Substance: DOMPERIDONE
     Dosage: 30 MG, QD
     Route: 048
     Dates: start: 20150803
  38. CLAVULANIC ACID [Concomitant]
     Active Substance: CLAVULANIC ACID
     Indication: Infection
     Dosage: 125 MG, QD
     Route: 048
     Dates: start: 20150804, end: 20150810
  39. POTASSIUM CHLORIDE [Concomitant]
     Active Substance: POTASSIUM CHLORIDE
     Indication: Product used for unknown indication
     Dosage: 2 DOSAGE FORM, QD
     Route: 048
     Dates: start: 20181120, end: 20181125
  40. OXYCODONE [Concomitant]
     Active Substance: OXYCODONE
     Indication: Product used for unknown indication
     Dosage: 1.25 MILLIGRAM, UNK
     Route: 058
     Dates: start: 201901, end: 20190406
  41. OMEPRAZOE [Concomitant]
     Indication: Product used for unknown indication
     Dosage: 20 MG
     Route: 048
     Dates: start: 201901, end: 20190406
  42. MIDAZOLAM [Concomitant]
     Active Substance: MIDAZOLAM
     Indication: Product used for unknown indication
     Dosage: UNK
     Route: 058
     Dates: start: 201901, end: 20190406
  43. MIDAZOLAM [Concomitant]
     Active Substance: MIDAZOLAM
     Dosage: 2.5 MILLIGRAM, UNK
     Route: 058
     Dates: start: 201901, end: 20190406
  44. LOPERAMIDE [Concomitant]
     Active Substance: LOPERAMIDE
     Indication: Product used for unknown indication
     Dosage: 2 MG
     Route: 048
     Dates: start: 20181025, end: 20190406
  45. LEVETIRACETAM [Concomitant]
     Active Substance: LEVETIRACETAM
     Indication: Product used for unknown indication
     Dosage: 500 MILLIGRAM, QD
     Route: 048
     Dates: start: 20180918, end: 20190406
  46. LEVETIRACETAM [Concomitant]
     Active Substance: LEVETIRACETAM
     Dosage: 1000 MILLIGRAM, QD
     Route: 048
     Dates: start: 20180918, end: 20190406
  47. LANSOPRAZOLE [Concomitant]
     Active Substance: LANSOPRAZOLE
     Indication: Product used for unknown indication
     Dosage: 30 MG, QD
     Route: 048
     Dates: start: 20181002, end: 201908
  48. LANSOPRAZOLE [Concomitant]
     Active Substance: LANSOPRAZOLE
     Dosage: 30 UNK
     Route: 048
     Dates: start: 20181002, end: 201908
  49. LACTULOSE [Concomitant]
     Active Substance: LACTULOSE
     Indication: Product used for unknown indication
     Dosage: 20 MILLILITER, OD (20 ML, M3)
     Route: 048
     Dates: start: 201901, end: 20190406
  50. GLYCOPYRROLATE [Concomitant]
     Active Substance: GLYCOPYRROLATE
     Indication: Product used for unknown indication
     Dosage: 200 MICROGRAM, UNK
     Route: 058
     Dates: start: 201901, end: 20190406
  51. GLYCOPYRROLATE [Concomitant]
     Active Substance: GLYCOPYRROLATE
     Indication: Product used for unknown indication
  52. CYCLIZINE [Concomitant]
     Active Substance: CYCLIZINE
     Indication: Product used for unknown indication
     Dosage: 50 MILLIGRAM, 50 MG
     Route: 058
     Dates: start: 201901, end: 20190406
  53. AMOXICILLIN\CLAVULANATE POTASSIUM [Concomitant]
     Active Substance: AMOXICILLIN\CLAVULANATE POTASSIUM
     Dosage: 625 MILLIGRAM
     Route: 048
     Dates: start: 20150804, end: 20150810
  54. AMOXICILLIN\CLAVULANATE POTASSIUM [Concomitant]
     Active Substance: AMOXICILLIN\CLAVULANATE POTASSIUM
     Dosage: 625 MILLIGRAM
     Route: 048
     Dates: start: 20180923, end: 20180930
  55. BUDESONIDE [Concomitant]
     Active Substance: BUDESONIDE
     Indication: Product used for unknown indication
     Dosage: 9 MILLIGRAM, UNK
     Route: 048
     Dates: start: 20181025, end: 20181114
  56. SENNOSIDE B [Concomitant]
     Active Substance: SENNOSIDE B
     Indication: Constipation
     Dosage: 15 MILLIGRAM, UNK
     Route: 048
     Dates: start: 20160809, end: 20190406
  57. SENNOSIDE B [Concomitant]
     Active Substance: SENNOSIDE B
     Dosage: 30 MILLIGRAM, QD
     Route: 048
     Dates: start: 20160809, end: 20190406
  58. POTASSIUM BICARBONATE;POTASSIUM CHLORIDE [Concomitant]
     Indication: Product used for unknown indication
     Dosage: UNK
     Route: 048
     Dates: start: 20180605, end: 20180607
  59. POTASSIUM BICARBONATE;POTASSIUM CHLORIDE [Concomitant]
     Dosage: 4 DF, QD, 4 DOSAGE FORM, QD
     Route: 048
     Dates: start: 20181120, end: 20181125
  60. AMOXICILLIN\CLAVULANATE POTASSIUM [Concomitant]
     Active Substance: AMOXICILLIN\CLAVULANATE POTASSIUM
     Indication: Product used for unknown indication
     Dosage: 1875 MG, QD
     Route: 048
     Dates: start: 20150804, end: 20150810
  61. AMOXICILLIN\CLAVULANATE POTASSIUM [Concomitant]
     Active Substance: AMOXICILLIN\CLAVULANATE POTASSIUM
     Dosage: 625 MG
     Route: 042
     Dates: start: 20180923, end: 20180930
  62. CALAMINE [Concomitant]
     Active Substance: CALAMINE\FERRIC OXIDE RED\ZINC OXIDE
     Indication: Product used for unknown indication
     Dosage: UNK
     Route: 061
     Dates: start: 201508, end: 201601
  63. CALAMINE [Concomitant]
     Active Substance: CALAMINE\FERRIC OXIDE RED\ZINC OXIDE
     Indication: Dry skin
  64. LORAZEPAM [Concomitant]
     Active Substance: LORAZEPAM
     Indication: Insomnia
     Dosage: 0.5 MILLIGRAM, UNK
     Route: 048
     Dates: start: 20160830, end: 20190406
  65. LORAZEPAM [Concomitant]
     Active Substance: LORAZEPAM
     Indication: Panic attack
     Dosage: 2 MILLIGRAM, UNK
     Route: 042
     Dates: start: 20180917, end: 20180918
  66. TICARCILLIN [Concomitant]
     Active Substance: TICARCILLIN
     Indication: Infection
     Dosage: 125 MILLIGRAM, QD
     Route: 048
     Dates: start: 20150804, end: 20150810
  67. CHLORPHENIRAMINE MALEATE [Concomitant]
     Active Substance: CHLORPHENIRAMINE MALEATE
     Indication: Pruritus
     Dosage: 10 MILLIGRAM, UNK
     Route: 042
     Dates: start: 20150807, end: 20150807
  68. HYDROCORTISONE [Concomitant]
     Active Substance: HYDROCORTISONE
     Indication: Pruritus
     Dosage: 100 MG
     Route: 042
     Dates: start: 20150807, end: 20150807
  69. HYPROMELLOSES [Concomitant]
     Active Substance: HYPROMELLOSES
     Indication: Lacrimation increased
     Dosage: 3 DF, QD
     Route: 047
     Dates: end: 20160401
  70. HYPROMELLOSES [Concomitant]
     Active Substance: HYPROMELLOSES
     Dosage: UNK, 0.33
     Route: 047
     Dates: end: 20160401
  71. AMOXICILLIN [Concomitant]
     Active Substance: AMOXICILLIN
     Dosage: UNK
  72. LANSOPRAZOLE [Concomitant]
     Active Substance: LANSOPRAZOLE
  73. OMEPRAZOLE [Concomitant]
     Active Substance: OMEPRAZOLE
     Indication: Product used for unknown indication
     Dosage: UNK
  74. OMEPRAZOLE [Concomitant]
     Active Substance: OMEPRAZOLE
     Dosage: 20 MILLIGRAM
     Route: 048
     Dates: start: 201901, end: 20190406
  75. SIMETHICONE (DIMETHICONE) [Concomitant]
     Active Substance: DIMETHICONE
  76. 3M CAVILON ANTIFUNGAL [Concomitant]
     Active Substance: MICONAZOLE NITRATE
     Indication: Prophylaxis
     Dosage: 92 G
     Route: 061
     Dates: start: 20150804
  77. 3M CAVILON ANTIFUNGAL [Concomitant]
     Active Substance: MICONAZOLE NITRATE
     Dosage: 92 GRAM/ START DATE: 04-AUG-2015
     Route: 061
     Dates: start: 20150804
  78. HERCEPTIN [Suspect]
     Active Substance: TRASTUZUMAB
     Dosage: 300 MILLIGRAM, Q3WK
     Route: 042
     Dates: start: 20160108, end: 20160405
  79. POTASSIUM BICARBONATE\POTASSIUM CHLORIDE [Concomitant]
     Active Substance: POTASSIUM BICARBONATE\POTASSIUM CHLORIDE
     Indication: Product used for unknown indication
     Dosage: 4 DOSAGE FORM, QD
     Route: 048
     Dates: start: 20181120, end: 20181125
  80. POTASSIUM BICARBONATE\POTASSIUM CHLORIDE [Concomitant]
     Active Substance: POTASSIUM BICARBONATE\POTASSIUM CHLORIDE
     Dosage: UNK
     Route: 048
     Dates: start: 20180605, end: 20180607
  81. CALAMINE [CALAMINE;GLYCEROL;ZINC OXIDE] [Concomitant]
     Indication: Dry skin
     Dosage: UNK
     Route: 061
     Dates: start: 201508, end: 201601
  82. TRASTUZUMAB [Suspect]
     Active Substance: TRASTUZUMAB
     Indication: HER2 positive breast cancer
     Dosage: 300 MILLIGRAM, Q3W/ START DATE: 03-JUN-2015
     Route: 042
     Dates: start: 20150603, end: 20150828
  83. TRASTUZUMAB [Suspect]
     Active Substance: TRASTUZUMAB
     Indication: Breast cancer metastatic
     Dosage: 300 MILLIGRAM, 3XW/ START DATE: 08-JAN-2016
     Route: 042
     Dates: end: 20160405
  84. TRASTUZUMAB [Suspect]
     Active Substance: TRASTUZUMAB
     Dosage: 275 MILLIGRAM, Q3W / START DATE:18-SEP-2015
     Route: 042
     Dates: start: 20150918, end: 20151211
  85. TRASTUZUMAB [Suspect]
     Active Substance: TRASTUZUMAB
     Dosage: 148 MILLIGRAM, 3XW/ START DATE: 10-AUG-2016
     Route: 042
     Dates: start: 20160810, end: 20170419
  86. TRASTUZUMAB [Suspect]
     Active Substance: TRASTUZUMAB
     Dosage: 300 MILLIGRAM, 3XW// STAT DATE: 03-JUN-2015
     Route: 042
     Dates: end: 20150804
  87. TRASTUZUMAB [Suspect]
     Active Substance: TRASTUZUMAB
     Dosage: 300 MILLIGRAM
     Route: 042
  88. TRASTUZUMAB [Suspect]
     Active Substance: TRASTUZUMAB
     Dosage: 184 MILLIGRAM, Q3W/ START DATE: 26-APR-2016
     Route: 042
     Dates: end: 20160720
  89. TRASTUZUMAB [Suspect]
     Active Substance: TRASTUZUMAB
     Dosage: 275 MILLIGRAM, 3XW/ START DATE:18-AUG-2015
     Route: 042
     Dates: end: 20151211
  90. TRASTUZUMAB [Suspect]
     Active Substance: TRASTUZUMAB
     Dosage: 160 MILLIGRAM, Q3W/ START DATE: 10-MAY-2017
     Route: 042
     Dates: start: 20170510, end: 20180808
  91. TRASTUZUMAB [Suspect]
     Active Substance: TRASTUZUMAB
     Dosage: 400 MILLIGRAM, 3XW/ START DATE: 13-MAY-2015
     Route: 041
     Dates: start: 20150513, end: 20150513
  92. TRASTUZUMAB [Suspect]
     Active Substance: TRASTUZUMAB
     Dosage: 300 MILLIGRAM, 3XW/ START DATE: 03-JUN-2015
     Route: 042
     Dates: start: 20150603, end: 20150604
  93. AMOXYCILLIN-DP [Concomitant]
     Indication: Infection
     Dosage: 500 MILLIGRAM, QD
     Route: 048
     Dates: start: 20150804, end: 20150810
  94. AMOXYCILLIN-DP [Concomitant]
     Dosage: 1500 MILLIGRAM, QD
     Route: 048
     Dates: start: 20150804, end: 20150810

REACTIONS (25)
  - Dementia [Recovered/Resolved]
  - Axillary pain [Recovered/Resolved]
  - Memory impairment [Recovered/Resolved]
  - Amnesia [Not Recovered/Not Resolved]
  - Catheter site haemorrhage [Recovered/Resolved]
  - Panic attack [Not Recovered/Not Resolved]
  - Chest discomfort [Recovered/Resolved]
  - Ejection fraction decreased [Unknown]
  - Seizure [Recovered/Resolved]
  - Appendicitis [Recovered/Resolved]
  - Seizure [Recovered/Resolved]
  - Anaphylactic reaction [Recovering/Resolving]
  - Neuropathy peripheral [Not Recovered/Not Resolved]
  - Neuropathy peripheral [Recovered/Resolved]
  - Hypokalaemia [Recovered/Resolved]
  - Diarrhoea [Recovered/Resolved]
  - Hypokalaemia [Recovered/Resolved]
  - Lacrimation increased [Recovered/Resolved]
  - Nail dystrophy [Recovered/Resolved]
  - Dry skin [Recovered/Resolved]
  - Fatigue [Recovered/Resolved]
  - Constipation [Not Recovered/Not Resolved]
  - Pruritus [Recovered/Resolved]
  - Insomnia [Not Recovered/Not Resolved]
  - Off label use [Unknown]

NARRATIVE: CASE EVENT DATE: 20150624
